FAERS Safety Report 24548940 (Version 1)
Quarter: 2024Q4

REPORT INFORMATION
  Report Type: Spontaneous
  Country: FR (occurrence: FR)
  Receive Date: 20241025
  Receipt Date: 20241025
  Transmission Date: 20250115
  Serious: Yes (Hospitalization)
  Sender: RANBAXY
  Company Number: FR-SUN PHARMACEUTICAL INDUSTRIES LTD-2024RR-474896

PATIENT
  Age: 50 Year
  Sex: Female
  Weight: 72 kg

DRUGS (1)
  1. IBUPROFEN [Suspect]
     Active Substance: IBUPROFEN
     Indication: Neck pain
     Dosage: UNK
     Route: 048
     Dates: start: 2004

REACTIONS (2)
  - Superior mesenteric artery dissection [Recovering/Resolving]
  - Intentional product misuse [Recovered/Resolved with Sequelae]

NARRATIVE: CASE EVENT DATE: 20040101
